FAERS Safety Report 9182588 (Version 1)
Quarter: 2013Q1

REPORT INFORMATION
  Report Type: Spontaneous
  Country: US (occurrence: US)
  Receive Date: 20130322
  Receipt Date: 20130322
  Transmission Date: 20140127
  Serious: No
  Sender: FDA-Public Use
  Company Number: US-BRISTOL-MYERS SQUIBB COMPANY-16837957

PATIENT
  Age: 61 Year
  Sex: Male

DRUGS (4)
  1. ERBITUX [Suspect]
     Indication: HEAD AND NECK CANCER
     Dosage: LAST DOSE:26JUL12
     Route: 042
     Dates: start: 20120619
  2. LISINOPRIL [Concomitant]
  3. ASPIRIN [Concomitant]
  4. HYDROCHLOROTHIAZIDE [Concomitant]

REACTIONS (1)
  - Speech disorder [Not Recovered/Not Resolved]
